FAERS Safety Report 8595324 (Version 5)
Quarter: 2012Q4

REPORT INFORMATION
  Report Type: Report from Study
  Country: DE (occurrence: DE)
  Receive Date: 20120604
  Receipt Date: 20121123
  Transmission Date: 20130627
  Serious: Yes (Hospitalization, Other)
  Sender: FDA-Public Use
  Company Number: PHHY2012DE047029

PATIENT
  Sex: Male
  Weight: 71 kg

DRUGS (10)
  1. FTY 720 [Suspect]
     Indication: MULTIPLE SCLEROSIS
     Dosage: 0.5 mg, QD
     Route: 048
     Dates: start: 20120112, end: 20120824
  2. FTY 720 [Suspect]
     Dosage: 0.5 mg, QD
     Route: 048
     Dates: start: 20120203
  3. IBUPROFEN [Concomitant]
     Dosage: 600 mg, PRN
     Dates: start: 201011
  4. FRISIUM [Concomitant]
     Dosage: 10 mg, PRN
     Dates: start: 200010
  5. KEPPRA [Concomitant]
     Dosage: 1000 mg, BID
     Dates: start: 200106
  6. LAMICTAL [Concomitant]
     Dosage: 100 mg, TID
     Dates: start: 199808
  7. PK-MERZ [Concomitant]
     Dosage: 100 mg, TID
     Dates: start: 200009
  8. MYDOCALM [Concomitant]
     Dosage: 100 mg, TID
     Route: 048
     Dates: start: 20120510, end: 20120529
  9. URBASON [Concomitant]
     Dosage: 1 g, UNK
     Dates: start: 20120820, end: 20120825
  10. SATIVEX [Concomitant]
     Indication: MUSCLE SPASTICITY
     Dosage: 1 puff, 2-0-6 UKN
     Dates: start: 20120607

REACTIONS (21)
  - Impaired healing [Recovered/Resolved]
  - Fall [Recovered/Resolved]
  - Gamma-glutamyltransferase increased [Not Recovered/Not Resolved]
  - Alanine aminotransferase increased [Not Recovered/Not Resolved]
  - Oral herpes [Recovered/Resolved]
  - Hypokalaemia [Recovered/Resolved]
  - Condition aggravated [Not Recovered/Not Resolved]
  - Multiple sclerosis relapse [Not Recovered/Not Resolved]
  - Chills [Unknown]
  - Pyrexia [Unknown]
  - Malaise [Unknown]
  - C-reactive protein increased [Unknown]
  - Procalcitonin increased [Unknown]
  - Blood culture positive [Unknown]
  - Weight decreased [Not Recovered/Not Resolved]
  - Sepsis [Recovered/Resolved]
  - Pneumonia [Recovered/Resolved]
  - Infection [Recovered/Resolved]
  - Leukopenia [Recovered/Resolved]
  - Lymphopenia [Recovered/Resolved]
  - Skin lesion [Recovered/Resolved]
